FAERS Safety Report 22159733 (Version 2)
Quarter: 2023Q2

REPORT INFORMATION
  Report Type: Spontaneous
  Country: JP (occurrence: JP)
  Receive Date: 20230331
  Receipt Date: 20230407
  Transmission Date: 20230721
  Serious: Yes (Other)
  Sender: FDA-Public Use
  Company Number: JP-teijin-202300712_TDI_P_1

PATIENT
  Age: 70 Year
  Sex: Female

DRUGS (1)
  1. ALOGLIPTIN BENZOATE\METFORMIN HYDROCHLORIDE [Suspect]
     Active Substance: ALOGLIPTIN BENZOATE\METFORMIN HYDROCHLORIDE
     Indication: Type 2 diabetes mellitus
     Dosage: 1 DF,ALOGLIPTIN BENZOATE:34MG;METFORMIN HYDROCHLORIDE:500MG
     Route: 048
     Dates: start: 20230316

REACTIONS (1)
  - Oropharyngeal blistering [Unknown]

NARRATIVE: CASE EVENT DATE: 20230301
